FAERS Safety Report 6453636-0 (Version None)
Quarter: 2009Q4

REPORT INFORMATION
  Report Type: 
  Country: None (occurrence: None)
  Receive Date: 20091124
  Receipt Date: 20091111
  Transmission Date: 20100525
  Serious: Yes (Hospitalization)
  Sender: FDA-Public Use
  Company Number: PHEH2009US15750

PATIENT
  Sex: Female

DRUGS (1)
  1. EXJADE [Suspect]
     Indication: SICKLE CELL ANAEMIA
     Dosage: 625 MG DAILY
     Route: 048

REACTIONS (5)
  - CEREBROVASCULAR ACCIDENT [None]
  - CHEST PAIN [None]
  - CONVULSION [None]
  - LARYNGEAL DISORDER [None]
  - LARYNGOSCOPY [None]
